FAERS Safety Report 11819255 (Version 1)
Quarter: 2015Q4

REPORT INFORMATION
  Report Type: Spontaneous
  Country: US (occurrence: None)
  Receive Date: 20151209
  Receipt Date: 20151209
  Transmission Date: 20160305
  Serious: Yes (Other)
  Sender: FDA-Public Use
  Company Number: None

PATIENT
  Age: 53 Year
  Sex: Female
  Weight: 72.12 kg

DRUGS (2)
  1. LEVOFLOXACIN. [Concomitant]
     Active Substance: LEVOFLOXACIN
  2. TUZISTRA XR [Suspect]
     Active Substance: CHLORPHENIRAMINE MALEATE\CODEINE PHOSPHATE ANHYDROUS
     Indication: COUGH
     Dosage: 2 T EVERY 12 HOURS BY MOUTH
     Route: 048
     Dates: start: 20151103, end: 20151103

REACTIONS (7)
  - Anxiety [None]
  - Oropharyngeal pain [None]
  - Panic reaction [None]
  - Dry throat [None]
  - Insomnia [None]
  - Heart rate irregular [None]
  - Dry mouth [None]

NARRATIVE: CASE EVENT DATE: 20151103
